FAERS Safety Report 7263433-4 (Version None)
Quarter: 2011Q1

REPORT INFORMATION
  Report Type: 
  Country: None (occurrence: None)
  Receive Date: 20110130
  Receipt Date: 20101106
  Transmission Date: 20110831
  Serious: No
  Sender: FDA-Public Use
  Company Number: US-ABBOTT-10P-163-0683888-00

PATIENT
  Age: 44 Year
  Sex: Female

DRUGS (4)
  1. ENTOCORT EC [Concomitant]
     Indication: CROHN'S DISEASE
     Dosage: UNKNOWN DOSAGE DAILY
  2. HUMIRA [Suspect]
     Indication: CROHN'S DISEASE
     Dosage: LOADING DOSE
     Dates: start: 20101027
  3. ASACOL [Concomitant]
     Indication: CROHN'S DISEASE
     Dosage: UNKNOWN DOSAGE DAILY
  4. BIRTH CONTROL PILLS [Concomitant]
     Indication: PRODUCT USED FOR UNKNOWN INDICATION

REACTIONS (5)
  - FIBROMYALGIA [None]
  - PYREXIA [None]
  - TOOTHACHE [None]
  - HEADACHE [None]
  - PAIN [None]
